FAERS Safety Report 18912680 (Version 1)
Quarter: 2021Q1

REPORT INFORMATION
  Report Type: Spontaneous
  Country: AT (occurrence: AT)
  Receive Date: 20210219
  Receipt Date: 20210219
  Transmission Date: 20210420
  Serious: Yes (Hospitalization, Other)
  Sender: FDA-Public Use
  Company Number: AT-ALVOGEN-2021-ALVOGEN-116527

PATIENT
  Age: 13 Year
  Sex: Male
  Weight: 49.8 kg

DRUGS (9)
  1. SODIUM CITRATE. [Concomitant]
     Active Substance: SODIUM CITRATE
     Indication: PRODUCT USED FOR UNKNOWN INDICATION
     Route: 065
     Dates: start: 20100806
  2. SPIRONOLACTONE. [Concomitant]
     Active Substance: SPIRONOLACTONE
     Indication: PRODUCT USED FOR UNKNOWN INDICATION
     Route: 065
     Dates: start: 20201216
  3. SACUBITRIL [Suspect]
     Active Substance: SACUBITRIL
     Indication: CARDIAC FAILURE
     Route: 048
     Dates: start: 20201014, end: 20201215
  4. CONCOR [Suspect]
     Active Substance: BISOPROLOL FUMARATE
     Indication: CARDIAC FAILURE CHRONIC
     Route: 065
     Dates: start: 20201210
  5. ACETYLSALICYLIC ACID [Concomitant]
     Active Substance: ASPIRIN
     Indication: PRODUCT USED FOR UNKNOWN INDICATION
     Route: 065
     Dates: start: 20201216
  6. TENORMIN [Suspect]
     Active Substance: ATENOLOL
     Indication: CARDIAC FAILURE CHRONIC
     Route: 065
     Dates: start: 20161101, end: 20201209
  7. VALSARTAN. [Suspect]
     Active Substance: VALSARTAN
     Indication: CARDIAC FAILURE
     Route: 048
     Dates: start: 20201014, end: 20201215
  8. ADVIT [Concomitant]
     Indication: PRODUCT USED FOR UNKNOWN INDICATION
     Route: 065
     Dates: start: 20080114
  9. L?CARNITIN [Concomitant]
     Indication: PRODUCT USED FOR UNKNOWN INDICATION
     Route: 065
     Dates: start: 20061222

REACTIONS (3)
  - Off label use [Unknown]
  - COVID-19 [Unknown]
  - Hypotension [Recovered/Resolved]

NARRATIVE: CASE EVENT DATE: 20161101
